FAERS Safety Report 5867693-3 (Version None)
Quarter: 2008Q3

REPORT INFORMATION
  Report Type: 
  Country: None (occurrence: None)
  Receive Date: 20080902
  Receipt Date: 20080111
  Transmission Date: 20090109
  Serious: No
  Sender: FDA-Public Use
  Company Number: US-ABBOTT-08P-163-0433352-00

PATIENT
  Age: 50 Year
  Sex: Male

DRUGS (2)
  1. DEPAKOTE ER [Suspect]
     Indication: BIPOLAR DISORDER
     Route: 048
  2. DEPAKOTE [Suspect]
     Indication: BIPOLAR DISORDER
     Route: 048

REACTIONS (2)
  - BIPOLAR DISORDER [None]
  - DRUG LEVEL BELOW THERAPEUTIC [None]
